FAERS Safety Report 3306946 (Version 1)
Quarter: 2020Q3

REPORT INFORMATION
  Report Type: Spontaneous
  Country: US (occurrence: None)
  Receive Date: 19990713
  Receipt Date: 19990713
  Transmission Date: 20201104
  Serious: Yes (Hospitalization)
  Sender: FDA-Public Use
  Company Number: 9928416

PATIENT
  Age: 35 Year
  Sex: Male
  Weight: 65.83 kg

DRUGS (1)
  1. ALATROFLOXACIN MESYLATE. [Suspect]
     Active Substance: ALATROFLOXACIN MESYLATE
     Indication: INFECTION
     Dosage: 200 MG TOTAL DAILY INTRAVENOUS
     Route: 042
     Dates: start: 19990304

REACTIONS (5)
  - Rash maculo-papular [None]
  - Skin exfoliation [None]
  - Rash pruritic [None]
  - Skin discolouration [None]
  - Dermatitis [None]

NARRATIVE: CASE EVENT DATE: 199903
